FAERS Safety Report 12281888 (Version 1)
Quarter: 2016Q2

REPORT INFORMATION
  Report Type: Spontaneous
  Country: US (occurrence: None)
  Receive Date: 20160418
  Receipt Date: 20160418
  Transmission Date: 20160815
  Serious: No
  Sender: FDA-Public Use
  Company Number: None

PATIENT
  Sex: Male

DRUGS (2)
  1. VICTOZA [Suspect]
     Active Substance: LIRAGLUTIDE
  2. METFORMIN [Suspect]
     Active Substance: METFORMIN HYDROCHLORIDE

REACTIONS (7)
  - Malaise [None]
  - Endocrine disorder [None]
  - Glycosylated haemoglobin increased [None]
  - Nephrolithiasis [None]
  - Adverse reaction [None]
  - Drug intolerance [None]
  - Weight decreased [None]
